FAERS Safety Report 4437151-1 (Version None)
Quarter: 2004Q3

REPORT INFORMATION
  Report Type: 
  Country: None (occurrence: None)
  Receive Date: 20040824
  Receipt Date: 20040810
  Transmission Date: 20050211
  Serious: Yes (Hospitalization)
  Sender: FDA-Public Use
  Company Number: 2004UW17053

PATIENT
  Age: 70 Year
  Sex: Female

DRUGS (10)
  1. CRESTOR [Suspect]
     Dosage: 10 MG DAILY PO
     Route: 048
     Dates: start: 20040709, end: 20040716
  2. LIPITOR [Concomitant]
  3. PREMARIN [Concomitant]
  4. SYNTHROID [Concomitant]
  5. TOPROL-XL [Concomitant]
  6. BUMEX [Concomitant]
  7. AVAPRO [Concomitant]
  8. GLUCOPHAGE [Concomitant]
  9. CLARINEX [Concomitant]
  10. ARISTOCORT [Concomitant]

REACTIONS (2)
  - BLOOD CREATINE PHOSPHOKINASE INCREASED [None]
  - MYOPATHY [None]
